FAERS Safety Report 23851390 (Version 2)
Quarter: 2024Q3

REPORT INFORMATION
  Report Type: Report from Study
  Country: US (occurrence: US)
  Receive Date: 20240514
  Receipt Date: 20240731
  Transmission Date: 20241016
  Serious: No
  Sender: ACADIA PHARMACEUTICALS
  Company Number: US-ACADIA PHARMACEUTICALS INC.-ACA-2024-PIM-002038

PATIENT
  Age: 66 Year
  Sex: Male

DRUGS (10)
  1. NUPLAZID [Suspect]
     Active Substance: PIMAVANSERIN TARTRATE
     Indication: Parkinson^s disease psychosis
     Dosage: 34 MILLIGRAM, QD
     Route: 048
     Dates: start: 20231201
  2. NUPLAZID [Suspect]
     Active Substance: PIMAVANSERIN TARTRATE
     Indication: Parkinson^s disease
  3. NUPLAZID [Suspect]
     Active Substance: PIMAVANSERIN TARTRATE
     Indication: Hallucination
  4. CARBIDOPA\LEVODOPA [Concomitant]
     Active Substance: CARBIDOPA\LEVODOPA
  5. AMANTADINE [Concomitant]
     Active Substance: AMANTADINE
  6. TUMS [Concomitant]
     Active Substance: CALCIUM CARBONATE
  7. TYLENOL [Concomitant]
     Active Substance: ACETAMINOPHEN
  8. VITAMINS [Concomitant]
     Active Substance: VITAMINS
  9. LYRICA [Concomitant]
     Active Substance: PREGABALIN
  10. MILK OF MAGNESIA [Concomitant]
     Active Substance: MAGNESIUM HYDROXIDE

REACTIONS (3)
  - Balance disorder [Unknown]
  - Abnormal dreams [Unknown]
  - Hallucination [Unknown]

NARRATIVE: CASE EVENT DATE: 20240709
